FAERS Safety Report 7758987-5 (Version None)
Quarter: 2011Q3

REPORT INFORMATION
  Report Type: 
  Country: None (occurrence: None)
  Receive Date: 20110915
  Receipt Date: 20110909
  Transmission Date: 20111222
  Serious: Yes (Other)
  Sender: FDA-Public Use
  Company Number: KAD201108-000008

PATIENT
  Age: 31 Year
  Sex: Female
  Weight: 48.9885 kg

DRUGS (3)
  1. INCIVEK [Suspect]
     Indication: HEPATITIS C
     Dosage: 2 TABLETS EVERY 8 HOURS
     Dates: start: 20110701
  2. RIBAVIRIN (RIBAVIRIN) (TABLETS) [Suspect]
     Indication: HEPATITIS C
     Dosage: 600MG AM AND 400MG PM, DAILY, ORAL,  200 MG AM AND 300 MG PM
     Route: 048
     Dates: start: 20110715, end: 20110809
  3. PEGASYS [Suspect]
     Indication: HEPATITIS C
     Dosage: 180 MICROGRAM WEEKLY,  SUBCUTANEOUS
     Route: 058
     Dates: start: 20110701

REACTIONS (3)
  - WHITE BLOOD CELL COUNT DECREASED [None]
  - PLATELET COUNT DECREASED [None]
  - ANAEMIA [None]
